FAERS Safety Report 4365345-2 (Version None)
Quarter: 2004Q2

REPORT INFORMATION
  Report Type: 
  Country: None (occurrence: None)
  Receive Date: 20040520
  Receipt Date: 20040507
  Transmission Date: 20050107
  Serious: No
  Sender: FDA-Public Use
  Company Number: 04H-163-0259763-00

PATIENT
  Age: 4 Year
  Sex: Male

DRUGS (1)
  1. BUPIVACAINE HCL 0.25% INJECTION, USP (BUPIVACAINE HYDROCHLORIDE INJECT [Suspect]
     Indication: LOCAL ANAESTHESIA
     Dosage: ONCE, INTRADERMAL
     Route: 023
     Dates: start: 20040412, end: 20040412

REACTIONS (3)
  - INJECTION SITE PAIN [None]
  - INJECTION SITE SWELLING [None]
  - URINARY RETENTION [None]
